FAERS Safety Report 5832617-1 (Version None)
Quarter: 2008Q3

REPORT INFORMATION
  Report Type: 
  Country: None (occurrence: None)
  Receive Date: 20080804
  Receipt Date: 20080724
  Transmission Date: 20090109
  Serious: Yes (Other)
  Sender: FDA-Public Use
  Company Number: PHHY2008GB14290

PATIENT
  Sex: Male

DRUGS (5)
  1. CLOZARIL [Suspect]
     Dosage: 12.5 MG, UNK
     Route: 048
     Dates: start: 20080710, end: 20080711
  2. METHADONE HCL [Concomitant]
     Indication: DRUG DEPENDENCE
     Dosage: 20 MG
     Route: 048
     Dates: start: 20080301
  3. RISPERIDONE [Concomitant]
     Indication: SCHIZOPHRENIA
     Dosage: 2 MG
     Route: 048
     Dates: start: 20080301
  4. RISPERDAL [Concomitant]
     Dosage: 50 MG
     Route: 030
     Dates: end: 20080709
  5. LORAZEPAM [Concomitant]
     Indication: AGITATION
     Dosage: 1 MG, PRN, QDS
     Route: 048
     Dates: start: 20080501

REACTIONS (5)
  - MEDICATION ERROR [None]
  - NEUTROPHIL COUNT DECREASED [None]
  - PLATELET COUNT ABNORMAL [None]
  - SEDATION [None]
  - WHITE BLOOD CELL COUNT DECREASED [None]
